FAERS Safety Report 10264185 (Version 1)
Quarter: 2014Q2

REPORT INFORMATION
  Report Type: Spontaneous
  Country: US (occurrence: US)
  Receive Date: 20140627
  Receipt Date: 20140627
  Transmission Date: 20141212
  Serious: No
  Sender: FDA-Public Use
  Company Number: US-009507513-1406USA007489

PATIENT
  Age: 60 Year
  Sex: Female

DRUGS (3)
  1. PEGINTRON [Suspect]
     Dosage: REDIPEN, 120 MICROGRAM, QW
     Dates: start: 20140610
  2. REBETOL [Suspect]
  3. SOVALDI [Concomitant]

REACTIONS (3)
  - Feeling cold [Recovered/Resolved]
  - Cold sweat [Recovered/Resolved]
  - Influenza like illness [Recovered/Resolved]
